FAERS Safety Report 23668116 (Version 2)
Quarter: 2024Q1

REPORT INFORMATION
  Report Type: Report from Study
  Country: IN (occurrence: IN)
  Receive Date: 20240325
  Receipt Date: 20240329
  Transmission Date: 20240410
  Serious: No
  Sender: FDA-Public Use
  Company Number: IN-002147023-NVSC2024IN063141

PATIENT
  Sex: Female

DRUGS (1)
  1. TASIGNA [Suspect]
     Active Substance: NILOTINIB
     Indication: Chronic myeloid leukaemia
     Dosage: 300 MG, BID
     Route: 048
     Dates: start: 20210602

REACTIONS (5)
  - Anaemia [Unknown]
  - Dizziness [Unknown]
  - Decreased appetite [Unknown]
  - Rash erythematous [Unknown]
  - Haemorrhage [Unknown]
